FAERS Safety Report 18570218 (Version 1)
Quarter: 2020Q4

REPORT INFORMATION
  Report Type: Report from Study
  Country: IT (occurrence: IT)
  Receive Date: 20201202
  Receipt Date: 20201202
  Transmission Date: 20210114
  Serious: Yes (Death, Hospitalization)
  Sender: FDA-Public Use
  Company Number: IT-PFIZER INC-2020470114

PATIENT
  Sex: Female

DRUGS (4)
  1. METHOTREXATE. [Suspect]
     Active Substance: METHOTREXATE
     Indication: COLORECTAL CANCER
     Dosage: 750 MG/M2, 2-H, DAY 1, EVERY 14 DAYS
     Route: 042
  2. 5-FU [Suspect]
     Active Substance: FLUOROURACIL
     Indication: COLORECTAL CANCER
     Dosage: 800 MG/M2, ON DAY 2, EVERY 14 DAYS
     Route: 040
  3. LEVOLEUCOVORIN CALCIUM. [Suspect]
     Active Substance: LEVOLEUCOVORIN CALCIUM
     Indication: COLORECTAL CANCER
     Dosage: 250 MG/M2, 2-H, DAY 2, EVERY 14 DAYS
     Route: 042
  4. SODIUM BICARBONATE. [Concomitant]
     Active Substance: SODIUM BICARBONATE
     Indication: URINE ALKALINISATION THERAPY
     Dosage: 500 ML, 1/6 M
     Route: 042

REACTIONS (3)
  - Disseminated intravascular coagulation [Fatal]
  - Acute kidney injury [Fatal]
  - Tumour necrosis [Fatal]
